FAERS Safety Report 11497846 (Version 1)
Quarter: 2015Q3

REPORT INFORMATION
  Report Type: Spontaneous
  Country: FR (occurrence: FR)
  Receive Date: 20150911
  Receipt Date: 20150911
  Transmission Date: 20151125
  Serious: Yes (Death)
  Sender: FDA-Public Use
  Company Number: FR-BAYER-2015-416235

PATIENT
  Age: 79 Year
  Sex: Male

DRUGS (4)
  1. FLAGYL [Suspect]
     Active Substance: METRONIDAZOLE\METRONIDAZOLE HYDROCHLORIDE
     Indication: SEPTIC SHOCK
     Dosage: 500 MG, TID
     Route: 042
     Dates: start: 20150511, end: 20150516
  2. GENTAMCIN [Suspect]
     Active Substance: GENTAMICIN
     Indication: SEPTIC SHOCK
     Dosage: DAILY DOSE 380 MG
     Route: 042
     Dates: start: 20150508, end: 20150508
  3. AUGMENTIN [Suspect]
     Active Substance: AMOXICILLIN\CLAVULANATE POTASSIUM
     Indication: SEPTIC SHOCK
     Dosage: 2 G, TID
     Route: 042
     Dates: start: 20150508, end: 20150519
  4. CIFLOX FLEXIBAGS 400MG/200ML [Suspect]
     Active Substance: CIPROFLOXACIN
     Indication: SEPTIC SHOCK
     Dosage: 400 MG, TID
     Route: 042
     Dates: start: 20150509, end: 20150517

REACTIONS (1)
  - Hepatitis cholestatic [Fatal]

NARRATIVE: CASE EVENT DATE: 20150703
